FAERS Safety Report 4587265-0 (Version None)
Quarter: 2005Q1

REPORT INFORMATION
  Report Type: 
  Country: None (occurrence: None)
  Receive Date: 20050218
  Receipt Date: 20050209
  Transmission Date: 20050727
  Serious: Yes (Other)
  Sender: FDA-Public Use
  Company Number: NZ-GLAXOSMITHKLINE-B0372054A

PATIENT
  Sex: Female

DRUGS (2)
  1. AROPAX [Suspect]
     Dates: start: 20041101, end: 20050121
  2. TRIPHASIL-21 [Suspect]

REACTIONS (5)
  - DRUG EXPOSURE DURING PREGNANCY [None]
  - DRUG INTERACTION [None]
  - PREGNANCY ON ORAL CONTRACEPTIVE [None]
  - TREATMENT NONCOMPLIANCE [None]
  - UNINTENDED PREGNANCY [None]
